FAERS Safety Report 15055522 (Version 1)
Quarter: 2018Q2

REPORT INFORMATION
  Report Type: Spontaneous
  Country: US (occurrence: US)
  Receive Date: 20180603
  Receipt Date: 20180603
  Transmission Date: 20180711
  Serious: No
  Sender: FDA-Public Use
  Company Number: None

PATIENT
  Age: 71 Year
  Sex: Female

DRUGS (1)
  1. DUPIXENT [Suspect]
     Active Substance: DUPILUMAB
     Dates: start: 20180414, end: 20180603

REACTIONS (6)
  - Blister [None]
  - Urticaria [None]
  - Rash [None]
  - Pruritus [None]
  - Oral herpes [None]
  - Herpes zoster [None]

NARRATIVE: CASE EVENT DATE: 20180602
